FAERS Safety Report 16111591 (Version 4)
Quarter: 2019Q2

REPORT INFORMATION
  Report Type: Report from Study
  Country: PL (occurrence: PL)
  Receive Date: 20190325
  Receipt Date: 20190515
  Transmission Date: 20190711
  Serious: Yes (Life-Threatening)
  Sender: FDA-Public Use
  Company Number: PL-ROCHE-2288249

PATIENT
  Sex: Female
  Weight: 95 kg

DRUGS (5)
  1. NIMESIL [Concomitant]
     Active Substance: NIMESULIDE
     Indication: ANALGESIC THERAPY
     Route: 048
  2. ATROX [Concomitant]
     Active Substance: ATORVASTATIN CALCIUM
     Indication: HYPERLIPIDAEMIA
     Route: 048
  3. TOCILIZUMAB. [Suspect]
     Active Substance: TOCILIZUMAB
     Indication: RHEUMATOID ARTHRITIS
     Route: 042
     Dates: start: 20160728
  4. MILURIT [Concomitant]
     Active Substance: ALLOPURINOL
     Indication: HYPERURICAEMIA
     Route: 048
  5. HELICID [OMEPRAZOLE] [Concomitant]
     Route: 048

REACTIONS (1)
  - Colon neoplasm [Recovered/Resolved]
